FAERS Safety Report 17032684 (Version 1)
Quarter: 2019Q4

REPORT INFORMATION
  Report Type: Report from Study
  Country: EG (occurrence: EG)
  Receive Date: 20191114
  Receipt Date: 20191114
  Transmission Date: 20200122
  Serious: Yes (Death)
  Sender: FDA-Public Use
  Company Number: EG-SEATTLE GENETICS-2019SGN03125

PATIENT
  Sex: Female

DRUGS (1)
  1. BRENTUXIMAB VEDOTIN-MPI [Suspect]
     Active Substance: BRENTUXIMAB VEDOTIN
     Indication: HODGKIN^S DISEASE
     Dosage: UNK
     Route: 042
     Dates: start: 20190717

REACTIONS (7)
  - Death [Fatal]
  - Decreased appetite [Unknown]
  - White blood cell count decreased [Unknown]
  - Pyrexia [Not Recovered/Not Resolved]
  - Skin bacterial infection [Unknown]
  - Haemoglobin decreased [Unknown]
  - Fatigue [Unknown]
